FAERS Safety Report 5480176-8 (Version None)
Quarter: 2007Q4

REPORT INFORMATION
  Report Type: 
  Country: None (occurrence: None)
  Receive Date: 20071009
  Receipt Date: 20070928
  Transmission Date: 20080405
  Serious: Yes (Other)
  Sender: FDA-Public Use
  Company Number: JP-BAYER-200715525GDS

PATIENT
  Age: 54 Year
  Sex: Female
  Weight: 48 kg

DRUGS (2)
  1. BUFFERIN [Suspect]
     Indication: IN VITRO FERTILISATION
     Route: 065
  2. PROGESTERON [Concomitant]
     Indication: IN VITRO FERTILISATION
     Route: 065

REACTIONS (2)
  - PLACENTA ACCRETA [None]
  - PLACENTA PRAEVIA [None]
